FAERS Safety Report 16425454 (Version 1)
Quarter: 2019Q2

REPORT INFORMATION
  Report Type: Spontaneous
  Country: CN (occurrence: CN)
  Receive Date: 20190613
  Receipt Date: 20190613
  Transmission Date: 20190711
  Serious: Yes (Other)
  Sender: FDA-Public Use
  Company Number: CN-ROCHE-2326265

PATIENT
  Age: 42 Year
  Sex: Male
  Weight: 70 kg

DRUGS (23)
  1. DEXAMETHASONE. [Concomitant]
     Active Substance: DEXAMETHASONE
     Indication: B-CELL LYMPHOMA
     Dosage: FROM DAY 1 TO DAY 7
     Route: 065
     Dates: start: 20161223
  2. MABTHERA [Suspect]
     Active Substance: RITUXIMAB
     Indication: B-CELL LYMPHOMA
     Dosage: DAY 0
     Route: 065
     Dates: start: 20170111
  3. MABTHERA [Suspect]
     Active Substance: RITUXIMAB
     Route: 065
     Dates: start: 20170203
  4. CISPLATIN. [Concomitant]
     Active Substance: CISPLATIN
     Indication: B-CELL LYMPHOMA
     Dosage: FROM DAY 1 TO DAY 4
     Route: 065
     Dates: start: 20170111
  5. RITUXIMAB. [Suspect]
     Active Substance: RITUXIMAB
     Indication: LYMPHOMA
     Route: 065
     Dates: start: 20160419, end: 20160811
  6. ETOPOSIDE. [Concomitant]
     Active Substance: ETOPOSIDE
     Indication: B-CELL LYMPHOMA
     Dosage: FROM DAY 3 TO DAY 4
     Route: 065
     Dates: start: 20161223
  7. CYCLOPHOSPHAMIDE. [Concomitant]
     Active Substance: CYCLOPHOSPHAMIDE
     Indication: LYMPHOMA
     Route: 065
     Dates: start: 20160419, end: 20160811
  8. MABTHERA [Suspect]
     Active Substance: RITUXIMAB
     Route: 065
     Dates: start: 20170306
  9. PREDNISONE. [Concomitant]
     Active Substance: PREDNISONE
     Indication: LYMPHOMA
     Route: 065
     Dates: start: 20160419, end: 20160811
  10. MITOXANTRONE [Concomitant]
     Active Substance: MITOXANTRONE HYDROCHLORIDE
     Indication: B-CELL LYMPHOMA
     Dosage: FROM DAY 1 TO DAY 2
     Route: 065
     Dates: start: 20161223
  11. MABTHERA [Suspect]
     Active Substance: RITUXIMAB
     Route: 065
     Dates: start: 20170328, end: 20170419
  12. CLADRIBINE. [Concomitant]
     Active Substance: CLADRIBINE
     Indication: B-CELL LYMPHOMA
     Dosage: FROM DAY1 TO DAY3
     Route: 065
     Dates: start: 20161223
  13. VINDESINE [Concomitant]
     Active Substance: VINDESINE
     Dosage: DAY1, DAY8
     Route: 065
     Dates: start: 20161223
  14. RITUXIMAB. [Suspect]
     Active Substance: RITUXIMAB
     Indication: B-CELL LYMPHOMA
  15. METHYLPREDNISOLONE. [Concomitant]
     Active Substance: METHYLPREDNISOLONE
     Indication: B-CELL LYMPHOMA
     Dosage: FROM DAY 1 TO DAY 4
     Route: 065
     Dates: start: 20170111
  16. LENALIDOMIDE [Concomitant]
     Active Substance: LENALIDOMIDE
     Indication: B-CELL LYMPHOMA
     Dosage: FROM DAY 1 TO DAY 21
     Route: 065
     Dates: start: 20170203
  17. LENALIDOMIDE [Concomitant]
     Active Substance: LENALIDOMIDE
     Dosage: FROM DAY1 TO DAY21
     Route: 065
     Dates: start: 20170519, end: 20170721
  18. MABTHERA [Suspect]
     Active Substance: RITUXIMAB
     Route: 065
     Dates: start: 20170519, end: 20170721
  19. EPIRUBICIN [Concomitant]
     Active Substance: EPIRUBICIN
     Indication: LYMPHOMA
     Route: 065
     Dates: start: 20160419, end: 20160811
  20. VINDESINE [Concomitant]
     Active Substance: VINDESINE
     Indication: LYMPHOMA
     Route: 065
     Dates: start: 20160419, end: 20160811
  21. ETOPOSIDE. [Concomitant]
     Active Substance: ETOPOSIDE
     Dosage: FROM DAY1 TO DAY4
     Route: 065
     Dates: start: 20170111
  22. CYTARABINE. [Concomitant]
     Active Substance: CYTARABINE
     Indication: B-CELL LYMPHOMA
     Dosage: DAY 5
     Route: 065
     Dates: start: 20170111
  23. LENALIDOMIDE [Concomitant]
     Active Substance: LENALIDOMIDE
     Dosage: FROM DAY1 TO DAY21
     Route: 065
     Dates: start: 20170328, end: 20170419

REACTIONS (11)
  - Hypermetabolism [Unknown]
  - Weight decreased [Unknown]
  - Chest discomfort [Unknown]
  - General physical health deterioration [Unknown]
  - Abdominal distension [Unknown]
  - Asthenia [Unknown]
  - Autoimmune haemolytic anaemia [Unknown]
  - Tachypnoea [Unknown]
  - Decreased appetite [Unknown]
  - Drug intolerance [Unknown]
  - Neoplasm [Unknown]
